FAERS Safety Report 17314303 (Version 1)
Quarter: 2020Q1

REPORT INFORMATION
  Report Type: Spontaneous
  Country: AU (occurrence: AU)
  Receive Date: 20200124
  Receipt Date: 20200124
  Transmission Date: 20200409
  Serious: Yes (Hospitalization)
  Sender: FDA-Public Use
  Company Number: AU-SAMSUNG BIOEPIS-SB-2020-01375

PATIENT
  Age: 36 Year
  Sex: Female

DRUGS (3)
  1. LORATADINE. [Concomitant]
     Active Substance: LORATADINE
     Indication: PREMEDICATION
     Route: 048
  2. INFLIXIMAB [Suspect]
     Active Substance: INFLIXIMAB
     Indication: PRODUCT USED FOR UNKNOWN INDICATION
     Dosage: UNKNOWN
     Route: 065
  3. HYDROCORTISONE. [Concomitant]
     Active Substance: HYDROCORTISONE
     Indication: PREMEDICATION
     Route: 042

REACTIONS (12)
  - Palpitations [Unknown]
  - Tachycardia [Recovered/Resolved]
  - Paraesthesia [Unknown]
  - Muscle spasms [Recovered/Resolved]
  - Hypotension [Recovered/Resolved]
  - Erythema [Unknown]
  - Malaise [Unknown]
  - Flushing [Recovered/Resolved]
  - Nausea [Recovered/Resolved]
  - Lip swelling [Unknown]
  - Abdominal pain [Recovered/Resolved]
  - Dizziness [Unknown]

NARRATIVE: CASE EVENT DATE: 20190710
